FAERS Safety Report 8461203-2 (Version None)
Quarter: 2012Q2

REPORT INFORMATION
  Report Type: 
  Country: None (occurrence: None)
  Receive Date: 20120323
  Receipt Date: 20110811
  Transmission Date: 20120825
  Serious: Yes (Other)
  Sender: FDA-Public Use
  Company Number: 163-21880-11061913

PATIENT
  Age: 64 Year
  Sex: Female
  Weight: 67.7 kg

DRUGS (1)
  1. REVLIMID [Suspect]
     Indication: MULTIPLE MYELOMA
     Dosage: 15 MG, DAILY FOR 3 WEEKS ON 1 WEEK OFF, PO
     Route: 048
     Dates: start: 20090813

REACTIONS (1)
  - WHITE BLOOD CELL COUNT DECREASED [None]
